FAERS Safety Report 8617870-3 (Version None)
Quarter: 2012Q3

REPORT INFORMATION
  Report Type: 
  Country: None (occurrence: None)
  Receive Date: 20120824
  Receipt Date: 20120315
  Transmission Date: 20120928
  Serious: No
  Sender: FDA-Public Use
  Company Number: US-ASTRAZENECA-2012SE18127

PATIENT
  Age: 38 Year
  Sex: Male

DRUGS (6)
  1. ALBUTEROL [Concomitant]
     Dosage: 0.083 % NEB
  2. SYMBICORT [Suspect]
     Dosage: 80/4.5 UNKNOWN
     Route: 055
  3. PROVENTIL [Concomitant]
  4. EXFORGE [Concomitant]
     Dosage: 10/320 MG
  5. IPRATROPIUM BROMIDE [Concomitant]
     Dosage: SOL NEPHRON
  6. NEPHRON [Concomitant]
     Dosage: 0.083 % NEB

REACTIONS (3)
  - CHRONIC OBSTRUCTIVE PULMONARY DISEASE [None]
  - BRONCHITIS [None]
  - BACK PAIN [None]
